FAERS Safety Report 7415281-X (Version None)
Quarter: 2011Q2

REPORT INFORMATION
  Report Type: 
  Country: None (occurrence: None)
  Receive Date: 20110414
  Receipt Date: 20110331
  Transmission Date: 20111010
  Serious: Yes (Other)
  Sender: FDA-Public Use
  Company Number: CA-JNJFOC-20110401325

PATIENT
  Sex: Male

DRUGS (15)
  1. METOPROLOL TARTRATE [Concomitant]
     Route: 065
  2. PREVACID [Concomitant]
     Route: 065
  3. METHOTREXATE [Concomitant]
     Route: 058
  4. VITAMINS E AND C [Concomitant]
  5. REMICADE [Suspect]
     Indication: ANKYLOSING SPONDYLITIS
     Route: 042
  6. FOLIC ACID [Concomitant]
     Route: 065
  7. LIPITOR [Concomitant]
     Route: 065
  8. ALLOPURINOL [Concomitant]
     Route: 065
  9. LYRICA [Concomitant]
     Route: 065
  10. HYDROCHLOROTHIAZIDE [Concomitant]
     Route: 065
  11. PREGNESIN [Concomitant]
     Route: 065
  12. REMICADE [Suspect]
     Indication: CROHN'S DISEASE
     Route: 042
  13. ASPIRIN [Concomitant]
     Route: 065
  14. COVERSYL [Concomitant]
     Route: 065
  15. TRAZODONE [Concomitant]
     Route: 065

REACTIONS (1)
  - NON-SMALL CELL LUNG CANCER METASTATIC [None]
